FAERS Safety Report 12176539 (Version 1)
Quarter: 2016Q1

REPORT INFORMATION
  Report Type: Spontaneous
  Country: US (occurrence: US)
  Receive Date: 20160314
  Receipt Date: 20160314
  Transmission Date: 20160526
  Serious: No
  Sender: FDA-Public Use
  Company Number: US-AKORN PHARMACEUTICALS-2015AKN00428

PATIENT
  Sex: Male
  Weight: 86.62 kg

DRUGS (1)
  1. MYORISAN [Suspect]
     Active Substance: ISOTRETINOIN
     Dosage: UNK
     Dates: end: 201306

REACTIONS (2)
  - Leukopenia [Recovered/Resolved]
  - Eosinophilia [Recovered/Resolved]
